FAERS Safety Report 9721818 (Version 1)
Quarter: 2013Q4

REPORT INFORMATION
  Report Type: Spontaneous
  Country: US (occurrence: US)
  Receive Date: 20131201
  Receipt Date: 20131201
  Transmission Date: 20140711
  Serious: No
  Sender: FDA-Public Use
  Company Number: US-ABBVIE-13P-163-1156958-00

PATIENT
  Age: 62 Year
  Sex: Male
  Weight: 91.25 kg

DRUGS (11)
  1. ANDROGEL [Suspect]
     Indication: BLOOD TESTOSTERONE DECREASED
     Dosage: 81 MG DAILY
     Route: 061
     Dates: start: 201104
  2. ANDROGEL [Suspect]
     Route: 061
     Dates: start: 2008, end: 2011
  3. VITAMIN D3 [Concomitant]
     Indication: VITAMIN SUPPLEMENTATION
  4. VITAMIN B-12 [Concomitant]
     Indication: VITAMIN SUPPLEMENTATION
  5. ASPIRIN [Concomitant]
     Indication: CARDIOVASCULAR EVENT PROPHYLAXIS
  6. FOLIC ACID [Concomitant]
     Indication: VITAMIN SUPPLEMENTATION
  7. AMLODIPINE [Concomitant]
     Indication: HYPERTENSION
  8. ZETIA [Concomitant]
     Indication: BLOOD CHOLESTEROL INCREASED
  9. NIASPAN ER [Concomitant]
     Indication: BLOOD CHOLESTEROL INCREASED
  10. GABAPENTIN [Concomitant]
     Indication: NEURALGIA
  11. CIALIS [Concomitant]
     Indication: ERECTILE DYSFUNCTION

REACTIONS (2)
  - Blood testosterone decreased [Unknown]
  - Blood testosterone increased [Recovered/Resolved]
